FAERS Safety Report 9106753 (Version 1)
Quarter: 2013Q1

REPORT INFORMATION
  Report Type: Spontaneous
  Country: AU (occurrence: AU)
  Receive Date: 20130221
  Receipt Date: 20130221
  Transmission Date: 20140127
  Serious: Yes (Hospitalization)
  Sender: FDA-Public Use
  Company Number: AU-JNJFOC-20130207894

PATIENT
  Age: 67 Year
  Sex: Male
  Weight: 91 kg

DRUGS (3)
  1. INFLIXIMAB, RECOMBINANT [Suspect]
     Indication: PSORIASIS
     Dosage: 3RD INFUSION
     Route: 042
  2. INFLIXIMAB, RECOMBINANT [Suspect]
     Indication: PSORIASIS
     Dosage: FREQUENCY: AT WEEK 0, 2 AND 6
     Route: 042
  3. METHOTREXATE [Concomitant]
     Indication: PSORIASIS
     Route: 048

REACTIONS (1)
  - Alveolitis [Recovered/Resolved]
